FAERS Safety Report 22320253 (Version 2)
Quarter: 2023Q2

REPORT INFORMATION
  Report Type: Report from Study
  Country: US (occurrence: US)
  Receive Date: 20230515
  Receipt Date: 20230518
  Transmission Date: 20230722
  Serious: No
  Sender: FDA-Public Use
  Company Number: US-002147023-NVSC2023US110663

PATIENT
  Age: 43 Year

DRUGS (1)
  1. MAYZENT [Suspect]
     Active Substance: SIPONIMOD
     Indication: Multiple sclerosis
     Dosage: 2 MG, QD
     Route: 048
     Dates: start: 20230428

REACTIONS (4)
  - Chest discomfort [Recovering/Resolving]
  - Hot flush [Recovering/Resolving]
  - Band sensation [Unknown]
  - Feeling hot [Unknown]

NARRATIVE: CASE EVENT DATE: 20230506
